FAERS Safety Report 6193273-9 (Version None)
Quarter: 2009Q2

REPORT INFORMATION
  Report Type: 
  Country: None (occurrence: None)
  Receive Date: 20090518
  Receipt Date: 20090511
  Transmission Date: 20091009
  Serious: Yes (Life-Threatening)
  Sender: FDA-Public Use
  Company Number: B0573134A

PATIENT
  Age: 2 Year
  Sex: Female
  Weight: 12.4 kg

DRUGS (7)
  1. ZIDOVUDINE [Suspect]
     Indication: HIV INFECTION
     Dosage: 130MG TWICE PER DAY
     Route: 048
     Dates: start: 20060815
  2. LAMIVUDINE [Suspect]
     Indication: HIV INFECTION
     Dosage: 50MG TWICE PER DAY
     Route: 048
     Dates: start: 20060815
  3. KALETRA [Suspect]
     Indication: HIV INFECTION
     Dosage: 1.8ML TWICE PER DAY
     Route: 048
     Dates: start: 20060815
  4. STAVUDINE [Suspect]
     Indication: HIV INFECTION
     Dosage: 12.5MG TWICE PER DAY
     Route: 048
     Dates: start: 20090421
  5. MULTI-VITAMIN [Concomitant]
  6. FERROUS GLUCONATE [Concomitant]
  7. FOLATE [Concomitant]

REACTIONS (4)
  - ANAEMIA [None]
  - BRONCHOPNEUMONIA [None]
  - CARDIAC FAILURE [None]
  - RESPIRATORY DISTRESS [None]
